FAERS Safety Report 22967417 (Version 2)
Quarter: 2023Q4

REPORT INFORMATION
  Report Type: Spontaneous
  Country: US (occurrence: US)
  Receive Date: 20230921
  Receipt Date: 20231019
  Transmission Date: 20240109
  Serious: No
  Sender: FDA-Public Use
  Company Number: US-PFIZER INC-202300301310

PATIENT
  Age: 65 Year
  Sex: Female

DRUGS (1)
  1. EUCRISA [Suspect]
     Active Substance: CRISABOROLE
     Indication: Dermatitis
     Dosage: UNK UNK, 2X/DAY (APPLY TO AFFECTED AREAS IN GROIN 2 TIMES DAILY UNTIL SMOOTH)

REACTIONS (1)
  - Off label use [Unknown]
